FAERS Safety Report 22215113 (Version 1)
Quarter: 2023Q2

REPORT INFORMATION
  Report Type: Spontaneous
  Country: IT (occurrence: IT)
  Receive Date: 20230415
  Receipt Date: 20230415
  Transmission Date: 20230722
  Serious: Yes (Other)
  Sender: FDA-Public Use
  Company Number: None

PATIENT
  Age: 59 Year
  Sex: Male

DRUGS (2)
  1. HYRIMOZ [Suspect]
     Active Substance: ADALIMUMAB-ADAZ
     Indication: Ankylosing spondylitis
     Dosage: 40 MG, (1 PEN OF 40 MG EVERY 14 DAYS)
     Route: 058
     Dates: start: 20220921, end: 20230221
  2. ETORICOXIB [Interacting]
     Active Substance: ETORICOXIB
     Indication: Musculoskeletal pain
     Dosage: UNK (THE PZ ASSUMES ETORICOXIB AS NEEDED)
     Route: 048

REACTIONS (1)
  - Autoimmune disorder [Not Recovered/Not Resolved]

NARRATIVE: CASE EVENT DATE: 20230101
